FAERS Safety Report 5848131-3 (Version None)
Quarter: 2008Q3

REPORT INFORMATION
  Report Type: 
  Country: None (occurrence: None)
  Receive Date: 20080818
  Receipt Date: 20080808
  Transmission Date: 20090109
  Serious: Yes (Life-Threatening)
  Sender: FDA-Public Use
  Company Number: JP-BRISTOL-MYERS SQUIBB COMPANY-14250278

PATIENT
  Age: 38 Year
  Sex: Male

DRUGS (12)
  1. IFOMIDE [Suspect]
     Indication: CARDIAC NEOPLASM UNSPECIFIED
     Dosage: STARTED ON 10MAR08;IIND CYLCE:01APR08(3GM); THERAPY DATES FROM 10MAR08 TO 02APR08; DURATION:24 DAYS
     Route: 042
     Dates: start: 20080310, end: 20080310
  2. MEYLON [Concomitant]
     Dosage: STARTED ON 10MAR08; RECEIVED AGAIN ON 01APR08 AND 02APR08
     Route: 042
     Dates: start: 20080310, end: 20080402
  3. DECADRON SRC [Concomitant]
     Indication: PROPHYLAXIS
     Dosage: STARTED ON 10MAR08; RECEIVED AGAIN ON 01APR08 AND 02APR08
     Dates: start: 20080310, end: 20080402
  4. KYTRIL [Concomitant]
     Indication: PROPHYLAXIS
     Dosage: INJECTION;STARTED ON 10MAR08; RECEIVED AGAIN ON 01APR08 AND 02APR08
     Route: 042
     Dates: start: 20080310, end: 20080402
  5. UROMITEXAN [Concomitant]
     Dosage: STARTED ON 10MAR08; RECEIVED AGAIN ON 01APR08 AND 02APR08
     Route: 042
     Dates: start: 20080310, end: 20080402
  6. BLOPRESS [Concomitant]
     Route: 048
     Dates: start: 20070201
  7. ALDACTONE [Concomitant]
     Route: 048
     Dates: start: 20070201
  8. LASIX [Concomitant]
     Dosage: RECEIVED ON 01APR08 AND 02APR08
     Route: 048
  9. CARVEDILOL [Concomitant]
     Indication: HYPERTENSION
     Route: 048
  10. ADONA [Concomitant]
     Route: 042
     Dates: start: 20080310, end: 20080310
  11. TRANSAMIN [Concomitant]
     Route: 042
     Dates: start: 20080310, end: 20080310
  12. MYSLEE [Concomitant]
     Indication: INSOMNIA
     Route: 048
     Dates: start: 20080306

REACTIONS (1)
  - HAEMOPTYSIS [None]
